FAERS Safety Report 16819530 (Version 3)
Quarter: 2020Q1

REPORT INFORMATION
  Report Type: Spontaneous
  Country: US (occurrence: US)
  Receive Date: 20190917
  Receipt Date: 20200220
  Transmission Date: 20200409
  Serious: Yes (Other)
  Sender: FDA-Public Use
  Company Number: US-ARRAY-2019-06321

PATIENT

DRUGS (4)
  1. MEKTOVI [Suspect]
     Active Substance: BINIMETINIB
     Indication: MALIGNANT MELANOMA
     Dosage: 45 MG, BID
     Route: 048
  2. CEPHALEXINE [Concomitant]
     Active Substance: CEPHALEXIN
     Indication: PRODUCT USED FOR UNKNOWN INDICATION
  3. MEKTOVI [Suspect]
     Active Substance: BINIMETINIB
     Dosage: 90 MG, QD
     Route: 048
  4. BRAFTOVI [Suspect]
     Active Substance: ENCORAFENIB
     Indication: MALIGNANT MELANOMA
     Dosage: 450 MG, QD
     Route: 048

REACTIONS (7)
  - Muscle spasms [Unknown]
  - Rash [Unknown]
  - Squamous cell carcinoma [Unknown]
  - Constipation [Unknown]
  - Chest pain [Unknown]
  - Fatigue [Unknown]
  - Metastasis [Unknown]

NARRATIVE: CASE EVENT DATE: 20200112
